FAERS Safety Report 8165479-0 (Version None)
Quarter: 2012Q1

REPORT INFORMATION
  Report Type: 
  Country: None (occurrence: None)
  Receive Date: 20120227
  Receipt Date: 20111025
  Transmission Date: 20120608
  Serious: No
  Sender: FDA-Public Use
  Company Number: US-MYLANLABS-2011S1020402

PATIENT
  Age: 72 Year
  Sex: Male

DRUGS (2)
  1. METOPROLOL TARTRATE [Suspect]
     Indication: ANGINA PECTORIS
     Route: 048
     Dates: start: 20080101
  2. ASPIRIN [Concomitant]

REACTIONS (5)
  - ABNORMAL DREAMS [None]
  - PALPITATIONS [None]
  - NIGHTMARE [None]
  - URINE ODOUR ABNORMAL [None]
  - DYSGEUSIA [None]
